FAERS Safety Report 17243081 (Version 1)
Quarter: 2020Q1

REPORT INFORMATION
  Report Type: Spontaneous
  Country: US (occurrence: US)
  Receive Date: 20200107
  Receipt Date: 20200107
  Transmission Date: 20200409
  Serious: No
  Sender: FDA-Public Use
  Company Number: US-ASTRAZENECA-2019SF82443

PATIENT
  Sex: Female
  Weight: 171.5 kg

DRUGS (6)
  1. BYDUREON [Suspect]
     Active Substance: EXENATIDE
     Indication: TYPE 2 DIABETES MELLITUS
     Route: 058
  2. LEVOTHYROXINE. [Concomitant]
     Active Substance: LEVOTHYROXINE
  3. AMARYL [Concomitant]
     Active Substance: GLIMEPIRIDE
  4. TELMISARTAN. [Concomitant]
     Active Substance: TELMISARTAN
  5. ORETIC [Concomitant]
     Active Substance: HYDROCHLOROTHIAZIDE
  6. ARMOUR THYROID [Concomitant]
     Active Substance: THYROID, PORCINE

REACTIONS (4)
  - Memory impairment [Unknown]
  - Device leakage [Unknown]
  - Incorrect dose administered by device [Unknown]
  - Injection site pain [Unknown]
